FAERS Safety Report 4722282-9 (Version None)
Quarter: 2005Q3

REPORT INFORMATION
  Report Type: 
  Country: None (occurrence: None)
  Receive Date: 20050722
  Receipt Date: 20041007
  Transmission Date: 20060218
  Serious: No
  Sender: FDA-Public Use
  Company Number: US-GLAXOSMITHKLINE-A0529028A

PATIENT
  Age: 45 Year
  Sex: Male

DRUGS (3)
  1. AVANDIA [Suspect]
     Dosage: 8MG PER DAY
     Route: 048
  2. METFORMIN [Concomitant]
  3. GLUCAGON [Concomitant]

REACTIONS (1)
  - WEIGHT INCREASED [None]
